FAERS Safety Report 8124839-4 (Version None)
Quarter: 2012Q1

REPORT INFORMATION
  Report Type: 
  Country: None (occurrence: None)
  Receive Date: 20120209
  Receipt Date: 20120130
  Transmission Date: 20120608
  Serious: Yes (Death)
  Sender: FDA-Public Use
  Company Number: US-PFIZER INC-2012034513

PATIENT
  Age: 42 Year
  Sex: Male

DRUGS (3)
  1. OXYCODONE HCL [Suspect]
     Indication: PAIN
     Dosage: 30 MG, UNK
  2. OXYCONTIN [Suspect]
     Indication: PAIN
  3. MORPHINE SULFATE [Suspect]
     Indication: PAIN

REACTIONS (1)
  - MULTIPLE DRUG OVERDOSE [None]
